FAERS Safety Report 13083121 (Version 4)
Quarter: 2017Q1

REPORT INFORMATION
  Report Type: Spontaneous
  Country: US (occurrence: US)
  Receive Date: 20170104
  Receipt Date: 20170223
  Transmission Date: 20170428
  Serious: No
  Sender: FDA-Public Use
  Company Number: US-TAIHO ONCOLOGY INC-EU-2016-03303

PATIENT
  Age: 69 Year
  Sex: Female
  Weight: 52.8 kg

DRUGS (22)
  1. KLOR-CON M20 [Concomitant]
     Active Substance: POTASSIUM CHLORIDE
  2. BIOTIN [Concomitant]
     Active Substance: BIOTIN
     Dosage: NI
  3. FLAXSEED [Concomitant]
     Active Substance: FLAX SEED
     Dosage: NI
  4. ASCORBIC ACID. [Concomitant]
     Active Substance: ASCORBIC ACID
     Dosage: NI
  5. HYDROCORTISONE ACETATE. [Concomitant]
     Active Substance: HYDROCORTISONE ACETATE
     Route: 054
  6. LONSURF [Suspect]
     Active Substance: TIPIRACIL HYDROCHLORIDE\TRIFLURIDINE
     Indication: RECTAL CANCER METASTATIC
     Dosage: CYCLE 3 STARTED ON 23/JAN/2017
     Route: 048
     Dates: start: 20161129
  7. ECHINACEA PURPUREA [Concomitant]
     Active Substance: ECHINACEA PURPUREA
  8. TURPENTINE. [Concomitant]
     Active Substance: TURPENTINE
     Dosage: NI
  9. ADVIL [Concomitant]
     Active Substance: IBUPROFEN
  10. COLECALCIFEROL [Concomitant]
     Active Substance: CHOLECALCIFEROL
     Dosage: NI
  11. ORALONE [Concomitant]
     Active Substance: TRIAMCINOLONE ACETONIDE
  12. LEVOTHYROXINE. [Concomitant]
     Active Substance: LEVOTHYROXINE
  13. COD-LIVER OIL [Concomitant]
     Active Substance: FISH OIL
     Dosage: NI
  14. FISH OIL [Concomitant]
     Active Substance: FISH OIL
     Dosage: NI
  15. FLORASTOR [Concomitant]
     Active Substance: SACCHAROMYCES CEREVISIAE
     Dosage: NI
  16. LONSURF [Suspect]
     Active Substance: TIPIRACIL HYDROCHLORIDE\TRIFLURIDINE
     Indication: COLON CANCER
  17. CLONAZEPAM. [Concomitant]
     Active Substance: CLONAZEPAM
  18. TURMERIC ROOT EXTRACT [Concomitant]
     Dosage: ROOT EXTRACT
  19. FUROSEMIDE. [Concomitant]
     Active Substance: FUROSEMIDE
  20. TURMERIC [Concomitant]
     Active Substance: TURMERIC
  21. CYMBALTA [Concomitant]
     Active Substance: DULOXETINE HYDROCHLORIDE
     Dosage: NI
  22. CLINDAMYCIN PHOSPHATE. [Concomitant]
     Active Substance: CLINDAMYCIN PHOSPHATE
     Route: 061

REACTIONS (13)
  - Fatigue [Not Recovered/Not Resolved]
  - Generalised oedema [Unknown]
  - Disease progression [Unknown]
  - Drug dose omission [Unknown]
  - Haemorrhoids [Unknown]
  - Tooth disorder [Not Recovered/Not Resolved]
  - Constipation [Unknown]
  - Hypophagia [Unknown]
  - Fluid retention [Unknown]
  - Ascites [Unknown]
  - Device failure [Unknown]
  - Weight decreased [Unknown]
  - Dry skin [Not Recovered/Not Resolved]

NARRATIVE: CASE EVENT DATE: 2016
